FAERS Safety Report 17521745 (Version 1)
Quarter: 2020Q1

REPORT INFORMATION
  Report Type: Spontaneous
  Country: NL (occurrence: NL)
  Receive Date: 20200310
  Receipt Date: 20200310
  Transmission Date: 20200409
  Serious: Yes (Other)
  Sender: FDA-Public Use
  Company Number: NL-PFIZER INC-2020102171

PATIENT
  Sex: Male

DRUGS (1)
  1. PANTOPRAZOLE [Suspect]
     Active Substance: PANTOPRAZOLE
     Indication: REGURGITATION
     Dosage: 20 MILLIGRAM, QD
     Route: 065
     Dates: start: 20191009, end: 20200129

REACTIONS (1)
  - Erectile dysfunction [Recovered/Resolved]
